FAERS Safety Report 5988125-0 (Version None)
Quarter: 2008Q4

REPORT INFORMATION
  Report Type: 
  Country: None (occurrence: None)
  Receive Date: 20081209
  Receipt Date: 20081209
  Transmission Date: 20090506
  Serious: Yes (Hospitalization)
  Sender: FDA-Public Use
  Company Number: None

PATIENT
  Age: 28 Year
  Weight: 108.4097 kg

DRUGS (3)
  1. RISPERDAL [Suspect]
     Indication: SCHIZOPHRENIA
     Dosage: 3 MG TWICE QHS
     Dates: start: 20080731, end: 20081120
  2. SEROQUEL [Suspect]
     Dates: start: 20081128
  3. BENADRYL [Concomitant]
     Dosage: 50 MG PO QHS
     Route: 048

REACTIONS (4)
  - ANXIETY [None]
  - INSOMNIA [None]
  - LOSS OF CONSCIOUSNESS [None]
  - PSYCHOTIC DISORDER [None]
